FAERS Safety Report 6115515-8 (Version None)
Quarter: 2009Q1

REPORT INFORMATION
  Report Type: 
  Country: None (occurrence: None)
  Receive Date: 20090313
  Receipt Date: 20090303
  Transmission Date: 20090719
  Serious: Yes (Other)
  Sender: FDA-Public Use
  Company Number: US-PFIZER INC-2009178079

PATIENT
  Sex: Female

DRUGS (14)
  1. LYRICA [Suspect]
     Indication: ARTHRITIS
     Dosage: 100 MG, UNK
  2. LYRICA [Suspect]
     Indication: FIBROMYALGIA
  3. ALPRAZOLAM [Suspect]
     Indication: DEPRESSION
     Dosage: 0.5 MG, AS NEEDED
     Dates: start: 19920101
  4. ALPRAZOLAM [Suspect]
     Indication: ANXIETY
  5. PREMPRO [Suspect]
     Dosage: UNK
  6. KLONOPIN [Concomitant]
     Dosage: UNK
  7. KLOR-CON [Concomitant]
     Dosage: UNK
  8. FUROSEMIDE [Concomitant]
     Dosage: UNK
  9. BUPROPION HCL [Concomitant]
     Dosage: UNK
  10. RANITIDINE [Concomitant]
     Dosage: UNK
  11. TRIMETHOPRIM [Concomitant]
     Dosage: UNK
  12. ACYCLOVIR [Concomitant]
     Dosage: UNK
  13. HYDROCODONE BITARTRATE [Concomitant]
     Dosage: UNK
  14. MORPHINE [Concomitant]
     Dosage: UNK

REACTIONS (9)
  - ANXIETY [None]
  - BODY HEIGHT DECREASED [None]
  - BONE DENSITY DECREASED [None]
  - CRYING [None]
  - FEELING DRUNK [None]
  - HEADACHE [None]
  - HYPERTENSION [None]
  - PAIN [None]
  - WEIGHT DECREASED [None]
